FAERS Safety Report 19410939 (Version 1)
Quarter: 2021Q2

REPORT INFORMATION
  Report Type: Spontaneous
  Country: US (occurrence: US)
  Receive Date: 20210614
  Receipt Date: 20210614
  Transmission Date: 20210717
  Serious: No
  Sender: FDA-Public Use
  Company Number: None

PATIENT
  Sex: Female

DRUGS (2)
  1. HUMIRA [Suspect]
     Active Substance: ADALIMUMAB
     Indication: RHEUMATOID ARTHRITIS
     Route: 058
     Dates: start: 20210511
  2. ENBREL [Suspect]
     Active Substance: ETANERCEPT

REACTIONS (5)
  - Joint swelling [None]
  - Therapy interrupted [None]
  - Arthritis [None]
  - Pain [None]
  - Alopecia [None]
